FAERS Safety Report 4643478-0 (Version None)
Quarter: 2005Q2

REPORT INFORMATION
  Report Type: 
  Country: None (occurrence: None)
  Receive Date: 20050325
  Receipt Date: 20041208
  Transmission Date: 20051028
  Serious: No
  Sender: FDA-Public Use
  Company Number: IND-AE-04-SAN-022

PATIENT
  Sex: Female

DRUGS (1)
  1. SANCTURA (TROPSIUM CHLORIDE TABLETS) [Suspect]
     Dosage: 20MG-BID-ORAL
     Route: 048

REACTIONS (1)
  - FLUSHING [None]
